FAERS Safety Report 6136364-0 (Version None)
Quarter: 2009Q1

REPORT INFORMATION
  Report Type: 
  Country: None (occurrence: None)
  Receive Date: 20090325
  Receipt Date: 20090311
  Transmission Date: 20090719
  Serious: Yes (Hospitalization)
  Sender: FDA-Public Use
  Company Number: 430023M08USA

PATIENT
  Age: 62 Year
  Sex: Male
  Weight: 73 kg

DRUGS (13)
  1. NOVANTRONE [Suspect]
     Indication: PROSTATE CANCER
     Dosage: 22 MG, 1 IN 3 WEEKS, INTRAVENOUS
     Route: 042
     Dates: start: 20081022, end: 20081204
  2. CETUXIMAB (CETUXIMAB) [Suspect]
     Indication: PROSTATE CANCER
     Dosage: 744 MG, 1 IN 1, INTRAVENOUS; 460 MG, 1 IN 1 WEEKS, INTRAVENOUS
     Route: 042
     Dates: start: 20081022, end: 20081022
  3. CETUXIMAB (CETUXIMAB) [Suspect]
     Indication: PROSTATE CANCER
     Dosage: 744 MG, 1 IN 1, INTRAVENOUS; 460 MG, 1 IN 1 WEEKS, INTRAVENOUS
     Route: 042
     Dates: end: 20081204
  4. FENTANYL [Concomitant]
  5. DILAUDID [Concomitant]
  6. ZOFRAN [Concomitant]
  7. REGLAN (METOCLOPRAMIDE /00041901/) [Concomitant]
  8. ATIVAN [Concomitant]
  9. DULCOLAX [Concomitant]
  10. CEFTIN [Concomitant]
  11. DECADRON (DEXAMETHASONE /0016001/A) [Concomitant]
  12. LACTULOSE [Concomitant]
  13. LORAZEPAM [Concomitant]

REACTIONS (17)
  - ASPARTATE AMINOTRANSFERASE INCREASED [None]
  - BLEPHARITIS [None]
  - BLOOD ALBUMIN DECREASED [None]
  - BLOOD ALKALINE PHOSPHATASE INCREASED [None]
  - BLOOD CALCIUM DECREASED [None]
  - BLOOD PRESSURE DECREASED [None]
  - COMPRESSION FRACTURE [None]
  - DEHYDRATION [None]
  - LUNG INFECTION [None]
  - MASS [None]
  - MYALGIA [None]
  - NAUSEA [None]
  - OEDEMA PERIPHERAL [None]
  - PALLOR [None]
  - PANCYTOPENIA [None]
  - PNEUMONIA [None]
  - VOMITING [None]
